FAERS Safety Report 21124799 (Version 1)
Quarter: 2022Q3

REPORT INFORMATION
  Report Type: Spontaneous
  Country: US (occurrence: None)
  Receive Date: 20220723
  Receipt Date: 20220723
  Transmission Date: 20221027
  Serious: Yes (Other)
  Sender: FDA-Public Use
  Company Number: None

PATIENT
  Age: 53 Year
  Sex: Female
  Weight: 54 kg

DRUGS (1)
  1. COLGATE OPTIC WHITE ENAMEL WHITE [Suspect]
     Active Substance: SODIUM MONOFLUOROPHOSPHATE
     Route: 048

REACTIONS (4)
  - Dry mouth [None]
  - Oral mucosal eruption [None]
  - Mouth swelling [None]
  - Mucosal inflammation [None]

NARRATIVE: CASE EVENT DATE: 20220707
